FAERS Safety Report 5226743-8 (Version None)
Quarter: 2007Q1

REPORT INFORMATION
  Report Type: 
  Country: None (occurrence: None)
  Receive Date: 20070201
  Receipt Date: 20070129
  Transmission Date: 20070707
  Serious: Yes (Other)
  Sender: FDA-Public Use
  Company Number: US-MERCK-0701USA04738

PATIENT
  Age: 47 Year
  Sex: Male
  Weight: 144 kg

DRUGS (15)
  1. FOSAMAX [Suspect]
     Route: 048
  2. LAMICTAL [Suspect]
     Indication: CONVULSION
     Route: 048
  3. LOVENOX [Suspect]
     Route: 065
  4. FOLIC ACID [Suspect]
     Route: 065
  5. SYNTHROID [Suspect]
     Route: 065
  6. PENTOXIFYLLINE [Suspect]
     Route: 065
  7. LEXAPRO [Suspect]
     Route: 065
  8. NEXIUM [Suspect]
     Route: 065
  9. GABAPENTIN [Suspect]
     Route: 065
  10. FUROSEMIDE [Suspect]
     Route: 065
  11. TRAZODONE HYDROCHLORIDE [Suspect]
     Route: 065
  12. LONAZOLAC CALCIUM [Suspect]
     Route: 065
  13. ASPIRIN [Suspect]
     Route: 065
  14. VITAMIN D (UNSPECIFIED) [Suspect]
     Route: 065
  15. CALCIUM (UNSPECIFIED) [Suspect]
     Route: 065

REACTIONS (3)
  - CONVULSION [None]
  - DRUG INEFFECTIVE [None]
  - DRUG INTERACTION [None]
